FAERS Safety Report 10713683 (Version 1)
Quarter: 2015Q1

REPORT INFORMATION
  Report Type: Spontaneous
  Country: TR (occurrence: TR)
  Receive Date: 20150115
  Receipt Date: 20150115
  Transmission Date: 20150721
  Serious: Yes (Other)
  Sender: FDA-Public Use
  Company Number: TR-PFIZER INC-2014357839

PATIENT
  Sex: Male
  Weight: .84 kg

DRUGS (1)
  1. LINEZOLID. [Suspect]
     Active Substance: LINEZOLID
     Indication: SEPSIS
     Dosage: 10 MG/KG, 2X/DAY

REACTIONS (2)
  - Thrombocytopenia [Recovered/Resolved]
  - Cataract [Recovered/Resolved]
